FAERS Safety Report 7527341-3 (Version None)
Quarter: 2011Q2

REPORT INFORMATION
  Report Type: 
  Country: None (occurrence: None)
  Receive Date: 20110607
  Receipt Date: 20110120
  Transmission Date: 20111010
  Serious: Yes (Hospitalization, Other)
  Sender: FDA-Public Use
  Company Number: US-BAYER-201034752NA

PATIENT
  Age: 31 Year
  Sex: Female
  Weight: 99.773 kg

DRUGS (2)
  1. YASMIN [Suspect]
     Indication: CONTRACEPTION
     Dosage: 1 TAB / DAY
     Dates: start: 20050901, end: 20060401
  2. CYMBALTA [Concomitant]

REACTIONS (5)
  - PULMONARY EMBOLISM [None]
  - FEAR [None]
  - CHEST PAIN [None]
  - MYOCARDIAL INFARCTION [None]
  - PAIN [None]
